FAERS Safety Report 7965577-8 (Version None)
Quarter: 2011Q4

REPORT INFORMATION
  Report Type: 
  Country: None (occurrence: None)
  Receive Date: 20111206
  Receipt Date: 20111123
  Transmission Date: 20120403
  Serious: Yes (Other)
  Sender: FDA-Public Use
  Company Number: CIP-2011-01032

PATIENT

DRUGS (3)
  1. DOCETAXEL [Suspect]
     Indication: NON-SMALL CELL LUNG CANCER
     Dosage: 75MG/M2 OVER 1 HOUR (DAY 1 OF EACH 21 DAY CYCLE, INTRAVENOUS
     Route: 042
  2. CARBOPLATIN [Suspect]
     Indication: NON-SMALL CELL LUNG CANCER
     Dosage: SEE IMAGE:
  3. DEXAMETHASONE [Concomitant]

REACTIONS (1)
  - ANAPHYLACTIC SHOCK [None]
